FAERS Safety Report 17803464 (Version 1)
Quarter: 2020Q2

REPORT INFORMATION
  Report Type: Spontaneous
  Country: DE (occurrence: DE)
  Receive Date: 20200519
  Receipt Date: 20200519
  Transmission Date: 20200714
  Serious: Yes (Other)
  Sender: FDA-Public Use
  Company Number: DE-PFIZER INC-2020193390

PATIENT
  Age: 38 Year
  Sex: Female

DRUGS (5)
  1. ENTRESTO [Concomitant]
     Active Substance: SACUBITRIL\VALSARTAN
     Dosage: 1 DF, 2X/DAY (IN THE MORNING AND IN THE EVENING)
     Dates: start: 2020
  2. INSPRA [Suspect]
     Active Substance: EPLERENONE
     Dosage: 25 MG, 1X/DAY (IN THE MORNING)
     Dates: start: 2020
  3. BISOPROLOL [Concomitant]
     Active Substance: BISOPROLOL
     Dosage: 2.5 MG, 2X/DAY (IN THE MORNING AND IN THE EVENING)
     Dates: start: 2020
  4. TOREM [TORASEMIDE SODIUM] [Concomitant]
     Dosage: 10 MG, 2X/DAY (IN THE MORNING AND AT NOON)
     Dates: start: 2020
  5. FORXIGA [Concomitant]
     Active Substance: DAPAGLIFLOZIN
     Dosage: 10 MG, 1X/DAY (IN THE MORNING)
     Dates: start: 2020

REACTIONS (4)
  - Body temperature increased [Unknown]
  - Pyelonephritis [Unknown]
  - Back pain [Unknown]
  - Renal pain [Unknown]

NARRATIVE: CASE EVENT DATE: 2020
